FAERS Safety Report 10539121 (Version 1)
Quarter: 2014Q4

REPORT INFORMATION
  Report Type: Spontaneous
  Country: AU (occurrence: AU)
  Receive Date: 20141023
  Receipt Date: 20141023
  Transmission Date: 20150529
  Serious: Yes (Death, Other)
  Sender: FDA-Public Use
  Company Number: AU-009507513-1410AUS011265

PATIENT
  Age: 60 Year
  Sex: Male

DRUGS (3)
  1. RIBAVIRIN. [Suspect]
     Active Substance: RIBAVIRIN
     Dosage: 1200 MG, QD
     Route: 048
     Dates: start: 20130607, end: 20140504
  2. INTERFERON NOS [Suspect]
     Active Substance: INTERFERON
     Dosage: 180 MICROGRAM, QW
     Dates: start: 20130607, end: 20140504
  3. TELAPREVIR [Concomitant]
     Active Substance: TELAPREVIR

REACTIONS (1)
  - Pneumonia [Fatal]

NARRATIVE: CASE EVENT DATE: 20140608
